FAERS Safety Report 9223345 (Version 1)
Quarter: 2013Q2

REPORT INFORMATION
  Report Type: Spontaneous
  Country: IE (occurrence: IE)
  Receive Date: 20130410
  Receipt Date: 20130410
  Transmission Date: 20140414
  Serious: Yes (Hospitalization, Other)
  Sender: FDA-Public Use
  Company Number: IE-ROXANE LABORATORIES, INC.-2013-RO-00460RO

PATIENT
  Age: 17 Year
  Sex: Male

DRUGS (1)
  1. DEXAMETHASONE [Suspect]
     Indication: ACUTE LYMPHOCYTIC LEUKAEMIA
     Dosage: 10 MG
     Route: 048

REACTIONS (2)
  - Mania [Recovered/Resolved]
  - Substance-induced psychotic disorder [Recovered/Resolved]
